FAERS Safety Report 22255578 (Version 1)
Quarter: 2023Q2

REPORT INFORMATION
  Report Type: Spontaneous
  Country: US (occurrence: None)
  Receive Date: 20230424
  Receipt Date: 20230424
  Transmission Date: 20230722
  Serious: Yes (Other)
  Sender: FDA-Public Use
  Company Number: None

PATIENT
  Age: 33 Year
  Sex: Female
  Weight: 68.04 kg

DRUGS (1)
  1. MIRENA [Suspect]
     Active Substance: LEVONORGESTREL
     Indication: Contraception
     Dosage: FREQUENCY : ONCE;?OTHER ROUTE : INTRAUTERINE;?
     Route: 050
     Dates: start: 20180214, end: 20230424

REACTIONS (5)
  - Pregnancy with contraceptive device [None]
  - Maternal exposure during pregnancy [None]
  - Foetal exposure during pregnancy [None]
  - Complication of device removal [None]
  - Vaginal haemorrhage [None]

NARRATIVE: CASE EVENT DATE: 20230420
